FAERS Safety Report 7113373-6 (Version None)
Quarter: 2010Q4

REPORT INFORMATION
  Report Type: 
  Country: None (occurrence: None)
  Receive Date: 20101119
  Receipt Date: 20101111
  Transmission Date: 20110411
  Serious: Yes (Death, Other)
  Sender: FDA-Public Use
  Company Number: CO-PFIZER INC-CO-WYE-H17687410

PATIENT
  Age: 42 Year
  Sex: Male

DRUGS (2)
  1. RAPAMUNE [Suspect]
     Indication: INTESTINAL TRANSPLANT
  2. TACROLIMUS [Suspect]
     Indication: INTESTINAL TRANSPLANT
     Dosage: UNK

REACTIONS (5)
  - CONDITION AGGRAVATED [None]
  - GENERAL PHYSICAL HEALTH DETERIORATION [None]
  - OPPORTUNISTIC INFECTION [None]
  - RENAL FAILURE [None]
  - TUBERCULOSIS [None]
